FAERS Safety Report 7075140-1 (Version None)
Quarter: 2010Q4

REPORT INFORMATION
  Report Type: 
  Country: None (occurrence: None)
  Receive Date: 20101029
  Receipt Date: 20100409
  Transmission Date: 20110411
  Serious: No
  Sender: FDA-Public Use
  Company Number: US-WYE-H14634210

PATIENT
  Sex: Female

DRUGS (1)
  1. ADVIL PM [Suspect]
     Dosage: UNKNOWN
     Route: 048
     Dates: start: 20100401

REACTIONS (3)
  - EYE PRURITUS [None]
  - RHINORRHOEA [None]
  - SEASONAL ALLERGY [None]
